FAERS Safety Report 4969208-0 (Version None)
Quarter: 2006Q2

REPORT INFORMATION
  Report Type: 
  Country: None (occurrence: None)
  Receive Date: 20060405
  Receipt Date: 20060323
  Transmission Date: 20061013
  Serious: Yes (Hospitalization)
  Sender: FDA-Public Use
  Company Number: 2006041122

PATIENT
  Age: 72 Year
  Sex: Female

DRUGS (3)
  1. DETROL [Suspect]
     Indication: BLADDER DISORDER
     Dosage: 1 MG (1 MG, 1 IN 1 D)
  2. DETROL LA [Suspect]
     Indication: BLADDER DISORDER
     Dosage: 2 MG (2 MG, 1 IN 1 D)
     Dates: start: 20050101
  3. ALL OTHER THERAPEUTIC PRODUCTS (ALL OTHER THERAPEUTIC PRODUCTS) [Concomitant]

REACTIONS (3)
  - CEREBROVASCULAR ACCIDENT [None]
  - GASTROINTESTINAL DISORDER [None]
  - MALAISE [None]
